FAERS Safety Report 6852619-6 (Version None)
Quarter: 2010Q3

REPORT INFORMATION
  Report Type: 
  Country: None (occurrence: None)
  Receive Date: 20100717
  Receipt Date: 20071219
  Transmission Date: 20110219
  Serious: No
  Sender: FDA-Public Use
  Company Number: US-PFIZER INC-2007096884

PATIENT
  Sex: Female
  Weight: 79.545 kg

DRUGS (6)
  1. CHANTIX [Suspect]
     Indication: SMOKING CESSATION THERAPY
     Dates: start: 20070711, end: 20071101
  2. PENTOXIFYLLINE [Concomitant]
     Indication: PERIPHERAL VASCULAR DISORDER
  3. ACETYLSALICYLIC ACID [Concomitant]
  4. ZANTAC [Concomitant]
     Indication: DYSPEPSIA
  5. IMITREX [Concomitant]
     Indication: MIGRAINE
  6. VITAMIN D [Concomitant]

REACTIONS (3)
  - DIARRHOEA [None]
  - NAUSEA [None]
  - OESOPHAGEAL PAIN [None]
